FAERS Safety Report 5715560-8 (Version None)
Quarter: 2008Q2

REPORT INFORMATION
  Report Type: 
  Country: None (occurrence: None)
  Receive Date: 20080422
  Receipt Date: 20080409
  Transmission Date: 20081010
  Serious: Yes (Hospitalization)
  Sender: FDA-Public Use
  Company Number: DSA_31707_2008

PATIENT
  Age: 47 Year
  Sex: Female

DRUGS (4)
  1. DILTIAZEM [Suspect]
     Indication: HYPERTENSION
     Dosage: (DF)
  2. CEPHALEXIN [Suspect]
     Indication: RASH
     Dosage: (DF)
  3. ANTIHISTAMINES (UNKNOWN) [Concomitant]
  4. PREDNISONE (UNKNOWN) [Concomitant]

REACTIONS (8)
  - BODY TEMPERATURE INCREASED [None]
  - NEUTROPHIL PERCENTAGE INCREASED [None]
  - OEDEMA [None]
  - PERIVASCULAR DERMATITIS [None]
  - RASH PAPULAR [None]
  - SKIN EXFOLIATION [None]
  - SKIN OEDEMA [None]
  - WHITE BLOOD CELL COUNT INCREASED [None]
